FAERS Safety Report 19901481 (Version 1)
Quarter: 2021Q3

REPORT INFORMATION
  Report Type: Spontaneous
  Country: US (occurrence: US)
  Receive Date: 20210930
  Receipt Date: 20210930
  Transmission Date: 20211014
  Serious: No
  Sender: FDA-Public Use
  Company Number: US-BION-009008

PATIENT
  Sex: Male
  Weight: 99.79 kg

DRUGS (1)
  1. IMODIUM A?D [Suspect]
     Active Substance: LOPERAMIDE HYDROCHLORIDE
     Indication: DIARRHOEA
     Dosage: USING SINCE 4 YEARS, 4X A DAY, 2 TABLETS AT A TIME
     Route: 048
     Dates: end: 20200831

REACTIONS (3)
  - Incorrect dose administered [Not Recovered/Not Resolved]
  - Incorrect product administration duration [Not Recovered/Not Resolved]
  - Product prescribing error [Not Recovered/Not Resolved]
